FAERS Safety Report 17389418 (Version 1)
Quarter: 2020Q1

REPORT INFORMATION
  Report Type: Spontaneous
  Country: CN (occurrence: CN)
  Receive Date: 20200207
  Receipt Date: 20200207
  Transmission Date: 20200409
  Serious: Yes (Other)
  Sender: FDA-Public Use
  Company Number: CN-PFIZER INC-2020051191

PATIENT
  Age: 37 Year
  Sex: Male

DRUGS (6)
  1. SOLU-MEDROL [Suspect]
     Active Substance: METHYLPREDNISOLONE SODIUM SUCCINATE
     Indication: NEURALGIA
  2. 0.9 % SODIUM CHLORIDE [Concomitant]
     Dosage: 100 ML, 1X/DAY
  3. MANNITOL. [Concomitant]
     Active Substance: MANNITOL
     Indication: INTERVERTEBRAL DISC PROTRUSION
     Dosage: 125 ML, 1X/DAY
     Route: 041
  4. 0.9 % SODIUM CHLORIDE [Concomitant]
     Dosage: 100 ML, 1X/DAY
  5. SOLU-MEDROL [Suspect]
     Active Substance: METHYLPREDNISOLONE SODIUM SUCCINATE
     Indication: INTERVERTEBRAL DISC PROTRUSION
     Dosage: 80 MG, UNK
  6. PARECOXIB SODIUM. [Concomitant]
     Active Substance: PARECOXIB SODIUM
     Dosage: 40 MG, UNK

REACTIONS (4)
  - Dry eye [Not Recovered/Not Resolved]
  - Off label use [Not Recovered/Not Resolved]
  - Chorioretinopathy [Not Recovered/Not Resolved]
  - Product use in unapproved indication [Not Recovered/Not Resolved]
